FAERS Safety Report 20629602 (Version 1)
Quarter: 2022Q1

REPORT INFORMATION
  Report Type: Spontaneous
  Country: JP (occurrence: JP)
  Receive Date: 20220323
  Receipt Date: 20220323
  Transmission Date: 20220424
  Serious: Yes (Hospitalization)
  Sender: FDA-Public Use
  Company Number: JP-UCBSA-2022017349

PATIENT
  Age: 80 Year
  Sex: Female

DRUGS (1)
  1. NEUPRO [Suspect]
     Active Substance: ROTIGOTINE
     Indication: Parkinson^s disease
     Dosage: 1MG UNK
     Route: 062

REACTIONS (3)
  - Pneumonia aspiration [Recovered/Resolved]
  - Pyrexia [Unknown]
  - Product use issue [Unknown]
